FAERS Safety Report 5139825-6 (Version None)
Quarter: 2006Q4

REPORT INFORMATION
  Report Type: 
  Country: None (occurrence: None)
  Receive Date: 20061026
  Receipt Date: 20061026
  Transmission Date: 20070319
  Serious: Yes (Hospitalization)
  Sender: FDA-Public Use
  Company Number: None

PATIENT
  Sex: Male
  Weight: 85.7 kg

DRUGS (2)
  1. MELPHALAN [Suspect]
     Dosage: 404 MG
     Dates: end: 20060920
  2. CYCLOPHOSPHAMIDE [Suspect]
     Dosage: 8.08 G
     Dates: end: 20060821

REACTIONS (9)
  - ATRIAL FIBRILLATION [None]
  - CHEST X-RAY ABNORMAL [None]
  - DIZZINESS [None]
  - DYSPHAGIA [None]
  - FEBRILE NEUTROPENIA [None]
  - HAEMOGLOBIN DECREASED [None]
  - MUCOSAL INFLAMMATION [None]
  - PLATELET COUNT DECREASED [None]
  - WHITE BLOOD CELL COUNT DECREASED [None]
